FAERS Safety Report 7260197-5 (Version None)
Quarter: 2011Q1

REPORT INFORMATION
  Report Type: 
  Country: None (occurrence: None)
  Receive Date: 20110130
  Receipt Date: 20101007
  Transmission Date: 20110831
  Serious: No
  Sender: FDA-Public Use
  Company Number: US-ABBOTT-10P-163-0676893-00

PATIENT
  Age: 45 Year
  Sex: Male

DRUGS (3)
  1. CLINDAMYCIN [Concomitant]
     Indication: PRODUCT USED FOR UNKNOWN INDICATION
  2. HUMIRA [Suspect]
     Indication: COLITIS ULCERATIVE
     Dates: start: 20100923
  3. HUMIRA [Suspect]
     Dates: start: 20101007

REACTIONS (2)
  - DIZZINESS [None]
  - TOOTH INFECTION [None]
